FAERS Safety Report 6468250-0 (Version None)
Quarter: 2009Q4

REPORT INFORMATION
  Report Type: 
  Country: None (occurrence: None)
  Receive Date: 20091125
  Receipt Date: 20091110
  Transmission Date: 20100525
  Serious: Yes (Hospitalization)
  Sender: FDA-Public Use
  Company Number: 2009SP028435

PATIENT
  Age: 25 Year
  Sex: Female
  Weight: 136.0791 kg

DRUGS (20)
  1. NUVARING [Suspect]
     Indication: CONTRACEPTION
     Dosage: VAG
     Route: 067
     Dates: start: 20050907, end: 20070315
  2. GEODON [Concomitant]
  3. CELEXA [Concomitant]
  4. XANAX [Concomitant]
  5. RABEPRAZOLE [Concomitant]
  6. EFFEXOR [Concomitant]
  7. DIFLUCAN [Concomitant]
  8. FLUOCINOLONE ACETONIDE [Concomitant]
  9. METHYLPREDNISOLONE [Concomitant]
  10. ZITHROMAX [Concomitant]
  11. TEMAZEPAM [Concomitant]
  12. LASIX [Concomitant]
  13. CLONAZEPAM [Concomitant]
  14. NULYTELY [Concomitant]
  15. OLUX [Concomitant]
  16. TOPAMAX [Concomitant]
  17. ACIPHEX [Concomitant]
  18. WELLBUTRIN [Concomitant]
  19. SEROQUEL [Concomitant]
  20. VALIUM [Concomitant]

REACTIONS (13)
  - ALCOHOL ABUSE [None]
  - ARTHRALGIA [None]
  - BIPOLAR II DISORDER [None]
  - BORDERLINE PERSONALITY DISORDER [None]
  - CHEST DISCOMFORT [None]
  - CHEST PAIN [None]
  - DEEP VEIN THROMBOSIS [None]
  - DRUG ABUSE [None]
  - DRUG RESISTANCE [None]
  - DYSPNOEA [None]
  - MITRAL VALVE INCOMPETENCE [None]
  - OEDEMA PERIPHERAL [None]
  - PAIN [None]
